FAERS Safety Report 23813089 (Version 1)
Quarter: 2024Q2

REPORT INFORMATION
  Report Type: Spontaneous
  Country: US (occurrence: US)
  Receive Date: 20240503
  Receipt Date: 20240503
  Transmission Date: 20240715
  Serious: Yes (Other)
  Sender: FDA-Public Use
  Company Number: US-AMNEAL PHARMACEUTICALS-2023-AMRX-03239

PATIENT
  Sex: Female
  Weight: 9.206 kg

DRUGS (1)
  1. VIGABATRIN [Suspect]
     Active Substance: VIGABATRIN
     Indication: Infantile spasms
     Dosage: MIX 1 PACKET IN 10 ML OF WATER AND GIVE/TAKE 3.5 ML (175 MG) TWICE A DAY.
     Route: 065

REACTIONS (1)
  - Condition aggravated [Unknown]
